FAERS Safety Report 21351446 (Version 1)
Quarter: 2022Q3

REPORT INFORMATION
  Report Type: Report from Study
  Country: CA (occurrence: CA)
  Receive Date: 20220919
  Receipt Date: 20220919
  Transmission Date: 20221027
  Serious: Yes (Hospitalization, Other)
  Sender: FDA-Public Use
  Company Number: CA-Taiho Oncology Inc-EU-2022-01541

PATIENT
  Age: 67 Year
  Sex: Male

DRUGS (3)
  1. LONSURF [Suspect]
     Active Substance: TIPIRACIL HYDROCHLORIDE\TRIFLURIDINE
     Indication: Colorectal cancer metastatic
     Dosage: DOSE, FREQUENCY AND CYCLE UNKNOWN
     Route: 048
     Dates: start: 20220511, end: 20220912
  2. LONSURF [Suspect]
     Active Substance: TIPIRACIL HYDROCHLORIDE\TRIFLURIDINE
     Dosage: DOSE AND FREQUENCY UNKNOWN, CYCLE-1
     Route: 048
     Dates: start: 20220517
  3. LONSURF [Suspect]
     Active Substance: TIPIRACIL HYDROCHLORIDE\TRIFLURIDINE
     Dosage: DOSE, FREQUENCY AND CURRENT CYCLE UNKNOWN.
     Route: 048
     Dates: start: 20220725

REACTIONS (5)
  - Fall [Recovering/Resolving]
  - Gastrointestinal infection [Recovered/Resolved]
  - Fatigue [Unknown]
  - Nausea [Unknown]
  - Asthenia [Unknown]
